FAERS Safety Report 7690987-6 (Version None)
Quarter: 2011Q3

REPORT INFORMATION
  Report Type: 
  Country: None (occurrence: None)
  Receive Date: 20110818
  Receipt Date: 20110812
  Transmission Date: 20111222
  Serious: Yes (Other)
  Sender: FDA-Public Use
  Company Number: CA-ROCHE-795353

PATIENT
  Sex: Female

DRUGS (6)
  1. VENTOLIN HFA [Concomitant]
  2. TRASTUZUMAB [Suspect]
     Route: 042
     Dates: start: 20110329
  3. FLOVENT [Concomitant]
     Indication: COUGH
  4. TYLENOL W/ CODEINE NO. 3 [Concomitant]
  5. TRASTUZUMAB [Suspect]
     Indication: BREAST CANCER
     Route: 042
     Dates: start: 20110307
  6. NYSTATIN [Concomitant]
     Route: 048

REACTIONS (1)
  - MASS [None]
